FAERS Safety Report 8556155-0 (Version None)
Quarter: 2012Q3

REPORT INFORMATION
  Report Type: 
  Country: None (occurrence: None)
  Receive Date: 20120719
  Receipt Date: 20120704
  Transmission Date: 20120928
  Serious: Yes (Hospitalization)
  Sender: FDA-Public Use
  Company Number: AE-SPE-2012-002

PATIENT
  Age: 64 Year
  Sex: Female

DRUGS (4)
  1. ASVERIN (TIPEPIDINE HIBENZATE) [Suspect]
     Indication: BRONCHITIS
     Dosage: 60 MG, P. O.
     Route: 048
     Dates: start: 20100316
  2. MEIACT MS (CEFDITOREN PIVOXIL) TABLETS [Suspect]
     Indication: BRONCHITIS
     Dosage: 300 MG, P. O.
     Route: 048
     Dates: start: 20100316, end: 20100316
  3. OKIMINAS (LOXOPROFEN SODIUM HYDRATE) [Suspect]
     Indication: BRONCHITIS
     Dosage: 180 MG P. O.
     Route: 048
     Dates: start: 20100316, end: 20100316
  4. POLARAMINE [Suspect]
     Indication: BRONCHITIS
     Dosage: 12 MG P.O.
     Route: 048
     Dates: start: 20100316

REACTIONS (2)
  - ANAPHYLACTIC SHOCK [None]
  - SELF-MEDICATION [None]
